FAERS Safety Report 5478713-2 (Version None)
Quarter: 2007Q4

REPORT INFORMATION
  Report Type: 
  Country: None (occurrence: None)
  Receive Date: 20071005
  Receipt Date: 20071001
  Transmission Date: 20080405
  Serious: Yes (Hospitalization)
  Sender: FDA-Public Use
  Company Number: US-BOEHRINGER INGELHEIM PHARMACEUTICALS, INC.-2007-BP-21409BP

PATIENT
  Sex: Female

DRUGS (9)
  1. AGGRENOX [Suspect]
     Indication: ANTICOAGULANT THERAPY
  2. COREG [Concomitant]
  3. COZAAR [Concomitant]
  4. FEMARA [Concomitant]
  5. ADVAIR DISKUS 100/50 [Concomitant]
  6. COLCHINICAN [Concomitant]
  7. NEXIUM [Concomitant]
  8. FOLTEX [Concomitant]
  9. UTRAM [Concomitant]

REACTIONS (1)
  - GASTRIC HAEMORRHAGE [None]
